FAERS Safety Report 5814307-4 (Version None)
Quarter: 2008Q3

REPORT INFORMATION
  Report Type: 
  Country: None (occurrence: None)
  Receive Date: 20080715
  Receipt Date: 20080702
  Transmission Date: 20090109
  Serious: Yes (Hospitalization)
  Sender: FDA-Public Use
  Company Number: TPA2008A01034

PATIENT
  Age: 53 Year
  Sex: Female
  Weight: 95.2554 kg

DRUGS (7)
  1. ACTOS [Suspect]
     Indication: DIABETES MELLITUS
     Dosage: 45 MG, 1 IN 1 D, PER ORAL
     Route: 048
     Dates: start: 20030101, end: 20080629
  2. GLIPIZIDE [Concomitant]
  3. METOPROLOL TARTRATE [Concomitant]
  4. LISINOPRIL [Concomitant]
  5. SIMVASTATIN [Concomitant]
  6. ASPIRIN [Concomitant]
  7. METFORMIN HCL [Concomitant]

REACTIONS (5)
  - ARTERIAL OCCLUSIVE DISEASE [None]
  - BLOOD GLUCOSE INCREASED [None]
  - ECONOMIC PROBLEM [None]
  - NAUSEA [None]
  - TREMOR [None]
